FAERS Safety Report 12920283 (Version 1)
Quarter: 2016Q4

REPORT INFORMATION
  Report Type: Spontaneous
  Country: CZ (occurrence: None)
  Receive Date: 20161107
  Receipt Date: 20161107
  Transmission Date: 20170207
  Serious: Yes (Life-Threatening, Hospitalization)
  Sender: FDA-Public Use
  Company Number: CZ2016K6631SPO

PATIENT
  Age: 71 Year
  Sex: Female
  Weight: 86 kg

DRUGS (6)
  1. INDAPAMIDE GENERIC (INDAPAMIDE) [Concomitant]
  2. LANZUL 30 MG (LANSOPRAZOLE) CAPSULE [Suspect]
     Active Substance: LANSOPRAZOLE
     Indication: GASTROOESOPHAGEAL REFLUX DISEASE
     Dosage: DOSE SKIPPED ON 14.10.2016
     Route: 048
     Dates: start: 20161011, end: 20161018
  3. AESCIN-TEVA (ESCINUM) [Concomitant]
  4. ASPIRIN PROTECT 100 (ACIDUM ACETYLSALICYLICUM) GASTRO-RESISTANT TABLET [Concomitant]
  5. BETALOC ZOK 50 MG (METOPROLOLI TARTRAS) [Concomitant]
  6. PRESTARIUM NEO FORTE (PERINDOPRILUM) [Concomitant]

REACTIONS (10)
  - Oral discomfort [None]
  - Anaphylactic reaction [None]
  - Vertigo [None]
  - Asthenia [None]
  - Hyperhidrosis [None]
  - Flushing [None]
  - Circulatory collapse [None]
  - Hypotension [None]
  - Palpitations [None]
  - Atrial tachycardia [None]

NARRATIVE: CASE EVENT DATE: 20161018
